FAERS Safety Report 8003726-6 (Version None)
Quarter: 2011Q4

REPORT INFORMATION
  Report Type: 
  Country: None (occurrence: None)
  Receive Date: 20111222
  Receipt Date: 20111217
  Transmission Date: 20120403
  Serious: Yes (Other)
  Sender: FDA-Public Use
  Company Number: AT-BRISTOL-MYERS SQUIBB COMPANY-16300758

PATIENT
  Age: 64 Year
  Sex: Male

DRUGS (2)
  1. ABILIFY [Suspect]
     Indication: SCHIZOPHRENIA, PARANOID TYPE
     Dosage: STARTED WITH 5MG + UPTITRATED TO 30MG,LATER WITHDRAWN
  2. CLOZAPINE [Concomitant]

REACTIONS (2)
  - AGGRESSION [None]
  - DELIRIUM [None]
